FAERS Safety Report 8486063-5 (Version None)
Quarter: 2012Q3

REPORT INFORMATION
  Report Type: 
  Country: None (occurrence: None)
  Receive Date: 20120703
  Receipt Date: 20120618
  Transmission Date: 20120928
  Serious: Yes (Other)
  Sender: FDA-Public Use
  Company Number: TR-WATSON-2012-11122

PATIENT
  Age: 73 Year
  Sex: Female

DRUGS (1)
  1. GALANTAMINE HYDROBROMIDE [Suspect]
     Indication: DEMENTIA ALZHEIMER'S TYPE
     Dosage: UNK
     Route: 065

REACTIONS (5)
  - DIZZINESS [None]
  - ELECTROCARDIOGRAM CHANGE [None]
  - BRADYARRHYTHMIA [None]
  - SYNCOPE [None]
  - CAROTID SINUS SYNDROME [None]
